FAERS Safety Report 6663943-4 (Version None)
Quarter: 2010Q2

REPORT INFORMATION
  Report Type: 
  Country: None (occurrence: None)
  Receive Date: 20100401
  Receipt Date: 20100324
  Transmission Date: 20101027
  Serious: Yes (Other)
  Sender: FDA-Public Use
  Company Number: US-SANOFI-AVENTIS-2010SA009051

PATIENT
  Age: 58 Year
  Sex: Female
  Weight: 86.81 kg

DRUGS (9)
  1. LANTUS [Suspect]
     Indication: TYPE 2 DIABETES MELLITUS
     Dosage: DOSE:15 UNIT(S)
     Route: 058
     Dates: start: 20090701
  2. SOLOSTAR [Suspect]
     Indication: TYPE 2 DIABETES MELLITUS
     Dates: start: 20090701
  3. METFORMIN (GLUCOPHAGE) [Concomitant]
     Route: 048
  4. PIOGLITAZONE [Concomitant]
     Route: 048
  5. BYETTA [Concomitant]
  6. ATORVASTATIN [Concomitant]
     Route: 048
  7. HYDROCHLOROTHIAZIDE [Concomitant]
     Indication: BLOOD PRESSURE
  8. ENALAPRIL MALEATE [Concomitant]
     Route: 048
  9. FENOFIBRATE [Concomitant]
     Route: 048

REACTIONS (2)
  - FALL [None]
  - FEMUR FRACTURE [None]
